FAERS Safety Report 11361138 (Version 2)
Quarter: 2015Q3

REPORT INFORMATION
  Report Type: Report from Study
  Country: JP (occurrence: JP)
  Receive Date: 20150810
  Receipt Date: 20150821
  Transmission Date: 20151125
  Serious: Yes (Hospitalization)
  Sender: FDA-Public Use
  Company Number: JP-EISAI MEDICAL RESEARCH-EC-2015-009394

PATIENT
  Age: 64 Year
  Sex: Male
  Weight: 65 kg

DRUGS (7)
  1. MAGMITT [Concomitant]
     Active Substance: MAGNESIUM OXIDE
  2. IBUDILAST [Concomitant]
     Active Substance: IBUDILAST
  3. ERIBULIN [Suspect]
     Active Substance: ERIBULIN
     Indication: LUNG NEOPLASM MALIGNANT
     Route: 041
     Dates: start: 20120425
  4. LOXOPROFEN [Concomitant]
     Active Substance: LOXOPROFEN
  5. TEPRENONE [Concomitant]
     Active Substance: TEPRENONE
  6. NEOSTELIN GREEN [Concomitant]
  7. TEARBALANCE [Concomitant]
     Active Substance: HYALURONATE SODIUM

REACTIONS (1)
  - Dehydration [Recovered/Resolved]

NARRATIVE: CASE EVENT DATE: 20150804
